FAERS Safety Report 8986748 (Version 2)
Quarter: 2013Q1

REPORT INFORMATION
  Report Type: Spontaneous
  Country: US (occurrence: US)
  Receive Date: 20121226
  Receipt Date: 20130103
  Transmission Date: 20140127
  Serious: Yes (Hospitalization, Other)
  Sender: FDA-Public Use
  Company Number: US-BAYER-2012-133241

PATIENT
  Age: 59 Year
  Sex: Female
  Weight: 77.1 kg

DRUGS (11)
  1. ALEVE CAPLET/TABLET,MIDOL EXTENDED RELIEF CAPLET [Suspect]
     Indication: PAIN
     Dosage: 200 MG, QD
  2. LYRICA [Suspect]
     Indication: FIBROMYALGIA
     Dosage: 50 MG, TID
     Route: 048
     Dates: start: 201211
  3. LYRICA [Suspect]
     Indication: DIABETIC NEUROPATHY
  4. LYRICA [Suspect]
     Indication: PAIN IN EXTREMITY
  5. AMITRIPTYLINE [Suspect]
     Indication: PAIN
     Dosage: 25 MG, QD
  6. CLONAZEPAM [Suspect]
     Indication: PAIN
     Dosage: 2 MG, QD
  7. MIRAPEX [Suspect]
     Dosage: 0.25 MG, QD
  8. TRAMADOL [Suspect]
     Dosage: 50 MG, PRN
  9. NOVOLOG [Concomitant]
     Indication: DIABETES MELLITUS
     Dosage: 20 UNITS
  10. LEVEMIR [Concomitant]
     Indication: DIABETES MELLITUS
     Dosage: 35 UNIT
  11. HUMALOG [Concomitant]
     Indication: DIABETES MELLITUS
     Dosage: 10 UNITS, QD

REACTIONS (8)
  - Constipation [Recovering/Resolving]
  - Chest discomfort [Unknown]
  - Eye abscess [Unknown]
  - Subcutaneous abscess [Unknown]
  - VIIth nerve paralysis [Unknown]
  - Somnolence [Unknown]
  - Constipation [Unknown]
  - VIIth nerve paralysis [None]
